FAERS Safety Report 6346627-1 (Version None)
Quarter: 2009Q3

REPORT INFORMATION
  Report Type: 
  Country: None (occurrence: None)
  Receive Date: 20090828
  Receipt Date: 20090821
  Transmission Date: 20100115
  Serious: Yes (Life-Threatening, Hospitalization, Other)
  Sender: FDA-Public Use
  Company Number: WAES 0908USA04196

PATIENT
  Age: 53 Year
  Sex: Male

DRUGS (9)
  1. CAP VORINOSTAT [Suspect]
     Indication: MULTIPLE MYELOMA
     Dosage: 400 MG/DAILY, PO
     Route: 048
     Dates: start: 20090630
  2. BORTEZOMIB [Suspect]
     Indication: MULTIPLE MYELOMA
     Dosage: 1.8 MG/KG/DAILY, IV
     Route: 042
     Dates: start: 20090630
  3. ARANESP [Concomitant]
  4. K-DUR [Concomitant]
  5. STEMETIL [Concomitant]
  6. ACYCLOVIR [Concomitant]
  7. DOCUSATE NA [Concomitant]
  8. LOPERAMIDE HCL [Concomitant]
  9. PHOSPHORUS (UNSPECIFIED) [Concomitant]

REACTIONS (6)
  - BLOOD CREATINE PHOSPHOKINASE DECREASED [None]
  - BLOOD CREATININE INCREASED [None]
  - DYSPNOEA [None]
  - FATIGUE [None]
  - METABOLIC ACIDOSIS [None]
  - PLATELET COUNT DECREASED [None]
